FAERS Safety Report 12107325 (Version 2)
Quarter: 2016Q1

REPORT INFORMATION
  Report Type: Report from Study
  Country: MX (occurrence: MX)
  Receive Date: 20160223
  Receipt Date: 20160303
  Transmission Date: 20160526
  Serious: Yes (Other)
  Sender: FDA-Public Use
  Company Number: PHHY2016MX022953

PATIENT
  Sex: Female

DRUGS (2)
  1. ULTIBRO BREEZHALER [Suspect]
     Active Substance: GLYCOPYRRONIUM\INDACATEROL
     Indication: RESPIRATORY DISORDER
  2. ULTIBRO BREEZHALER [Suspect]
     Active Substance: GLYCOPYRRONIUM\INDACATEROL
     Indication: LUNG DISORDER
     Dosage: 150 MG, BID (APPROXIMATLY, AS REPORTED)
     Route: 055

REACTIONS (6)
  - Senile dementia [Unknown]
  - Visual impairment [Unknown]
  - Memory impairment [Unknown]
  - Inappropriate schedule of drug administration [Not Recovered/Not Resolved]
  - Deafness [Not Recovered/Not Resolved]
  - Drug prescribing error [Not Recovered/Not Resolved]
